FAERS Safety Report 15780096 (Version 1)
Quarter: 2019Q1

REPORT INFORMATION
  Report Type: Spontaneous
  Country: FR (occurrence: FR)
  Receive Date: 20190102
  Receipt Date: 20190102
  Transmission Date: 20190417
  Serious: Yes (Other)
  Sender: FDA-Public Use
  Company Number: FR-ALKEM LABORATORIES LIMITED-FR-ALKEM-2018-00345

PATIENT
  Age: 29 Year
  Sex: Male

DRUGS (3)
  1. PREDNISONE. [Suspect]
     Active Substance: PREDNISONE
     Indication: ANGIOLYMPHOID HYPERPLASIA WITH EOSINOPHILIA
     Dosage: 1 MG/KG/DAY
     Route: 065
  2. MYCOPHENOLATE MOFETIL. [Suspect]
     Active Substance: MYCOPHENOLATE MOFETIL
     Indication: ANGIOLYMPHOID HYPERPLASIA WITH EOSINOPHILIA
     Dosage: 1 G, BID
     Route: 065
  3. PREDNISONE. [Suspect]
     Active Substance: PREDNISONE
     Indication: PNEUMONIA
     Dosage: 20 MG, QD
     Route: 065

REACTIONS (2)
  - Off label use [Unknown]
  - Upper respiratory tract infection [Unknown]
